FAERS Safety Report 7816729-9 (Version None)
Quarter: 2011Q4

REPORT INFORMATION
  Report Type: 
  Country: None (occurrence: None)
  Receive Date: 20111013
  Receipt Date: 20110928
  Transmission Date: 20120403
  Serious: Yes (Death, Life-Threatening, Hospitalization, Disabling, Other)
  Sender: FDA-Public Use
  Company Number: 012278

PATIENT
  Age: 57 Year
  Sex: Female

DRUGS (34)
  1. DIVALPROEX SODIUM [Concomitant]
  2. LEVOFLOXACIN [Concomitant]
  3. URSODIOL [Concomitant]
  4. ACETAMINOPHEN [Concomitant]
  5. DIPHENHYDRAMINE HCL [Concomitant]
  6. ETOPOSIDE [Concomitant]
  7. CONJUGEN (EQUILIN SULFATE SODIUM, ESTRONE SODIUM SULFATE) [Concomitant]
  8. FLUOXETINE HCL [Concomitant]
  9. VANCOMYCIN [Concomitant]
  10. HYDROMORPHONE HCL [Concomitant]
  11. PROCHLORPERAZINE (PROCHLORPERAZINE MALEATE) [Concomitant]
  12. FLUCONAZOLE [Concomitant]
  13. MAGNESIUM SULFATE [Concomitant]
  14. VORICONAZOLE [Concomitant]
  15. LOPERAMIDE [Concomitant]
  16. OXYCODONE HCL [Concomitant]
  17. ACYCLOVIR [Concomitant]
  18. BUPROPION HCL [Concomitant]
  19. ESTRADIOL [Concomitant]
  20. MEROPENEM [Concomitant]
  21. LEVOFLOXACIN [Concomitant]
  22. PHENAZOPYRIDINE (PHENAZOPYRIDINE) [Concomitant]
  23. SUCCINYLCHOLINE CHLORIDE [Concomitant]
  24. CLOTRIMAZOLE [Concomitant]
  25. FENTANYL [Concomitant]
  26. FUROSEMIDE [Concomitant]
  27. BUSULFAN [Suspect]
     Indication: STEM CELL TRANSPLANT
     Dosage: 44 MG, SINGLE, INTRAVENOUS 181 MG, DAILY DOSE, INTRAVENOUS
     Route: 042
     Dates: start: 20101104, end: 20101107
  28. BUSULFAN [Suspect]
     Indication: STEM CELL TRANSPLANT
     Dosage: 44 MG, SINGLE, INTRAVENOUS 181 MG, DAILY DOSE, INTRAVENOUS
     Route: 042
     Dates: start: 20101101, end: 20101101
  29. ETOMIDATE [Concomitant]
  30. OMEPRAZOLE [Concomitant]
  31. CYCLOPHOSPHAMIDE [Concomitant]
  32. AQUAPHOR HEALING OINTMENT (BISABOLOL, CERESIN, PARAFFIN SOFT, PARAFFIN [Concomitant]
  33. FILGRASTIM (FILGRASTIM) [Concomitant]
  34. HEPARIN [Concomitant]

REACTIONS (10)
  - HYPERNATRAEMIA [None]
  - RESPIRATORY DISTRESS [None]
  - HYPOTENSION [None]
  - BACTERIAL INFECTION [None]
  - SINUS TACHYCARDIA [None]
  - FEBRILE NEUTROPENIA [None]
  - LUNG INFECTION [None]
  - RENAL FAILURE ACUTE [None]
  - ASPERGILLOSIS [None]
  - RESPIRATORY FAILURE [None]
